FAERS Safety Report 13666077 (Version 1)
Quarter: 2017Q2

REPORT INFORMATION
  Report Type: Spontaneous
  Country: US (occurrence: US)
  Receive Date: 20170619
  Receipt Date: 20170619
  Transmission Date: 20170830
  Serious: No
  Sender: FDA-Public Use
  Company Number: US-ROCHE-1368450

PATIENT
  Sex: Female

DRUGS (2)
  1. XELODA [Suspect]
     Active Substance: CAPECITABINE
     Indication: PRODUCT USED FOR UNKNOWN INDICATION
     Dosage: 14 DAYS ON AND 14 DAYS OFF.
     Route: 048
     Dates: start: 20130506
  2. TEMODAR [Concomitant]
     Active Substance: TEMOZOLOMIDE
     Dosage: DAILY FOR 5 DAYS EVERY 28 DAYS
     Route: 048
     Dates: start: 20130506

REACTIONS (1)
  - Pain in extremity [Recovered/Resolved]
